FAERS Safety Report 13503702 (Version 2)
Quarter: 2020Q2

REPORT INFORMATION
  Report Type: Report from Study
  Country: US (occurrence: US)
  Receive Date: 20170502
  Receipt Date: 20200403
  Transmission Date: 20200713
  Serious: No
  Sender: FDA-Public Use
  Company Number: US-009507513-1704USA011642

PATIENT
  Age: 23 Year
  Sex: Female
  Weight: 102.49 kg

DRUGS (2)
  1. IMPLANON [Suspect]
     Active Substance: ETONOGESTREL
     Indication: CONTRACEPTION
     Dosage: 1 ROD (68 MG) EVERY THREE YEARS
     Route: 059
     Dates: start: 20160112, end: 20170511
  2. IMPLANON [Suspect]
     Active Substance: ETONOGESTREL
     Dosage: 1 IMPLANT
     Route: 059
     Dates: start: 20170511

REACTIONS (4)
  - Device placement issue [Recovered/Resolved]
  - Device kink [Recovered/Resolved]
  - No adverse event [Unknown]
  - Colonoscopy [Unknown]

NARRATIVE: CASE EVENT DATE: 20160112
